FAERS Safety Report 8056592-7 (Version None)
Quarter: 2012Q1

REPORT INFORMATION
  Report Type: 
  Country: None (occurrence: None)
  Receive Date: 20120119
  Receipt Date: 20120117
  Transmission Date: 20120608
  Serious: Yes (Other)
  Sender: FDA-Public Use
  Company Number: US-GLAXOSMITHKLINE-A0961705A

PATIENT
  Age: 41 Year
  Sex: Female

DRUGS (1)
  1. ALLI [Suspect]
     Indication: WEIGHT LOSS DIET
     Route: 048
     Dates: start: 20120101, end: 20120116

REACTIONS (5)
  - RECTAL HAEMORRHAGE [None]
  - RECTAL DISCHARGE [None]
  - FREQUENT BOWEL MOVEMENTS [None]
  - ABDOMINAL PAIN UPPER [None]
  - STEATORRHOEA [None]
